FAERS Safety Report 8539920-5 (Version None)
Quarter: 2012Q3

REPORT INFORMATION
  Report Type: 
  Country: None (occurrence: None)
  Receive Date: 20120726
  Receipt Date: 20120711
  Transmission Date: 20120928
  Serious: Yes (Other)
  Sender: FDA-Public Use
  Company Number: US-WATSON-2012-12204

PATIENT
  Sex: Male
  Weight: 91 kg

DRUGS (5)
  1. RAPAFLO [Suspect]
     Indication: BENIGN PROSTATIC HYPERPLASIA
     Dosage: 8 MG, DAILY
     Route: 048
     Dates: start: 20120629, end: 20120710
  2. PROGRAF [Concomitant]
     Indication: PROPHYLAXIS AGAINST TRANSPLANT REJECTION
     Dosage: 2 MG, BID
     Route: 048
     Dates: start: 20120202
  3. BACTRIM [Concomitant]
     Indication: PROPHYLAXIS AGAINST TRANSPLANT REJECTION
     Dosage: 400 MG DAILY
     Route: 048
     Dates: start: 20120202
  4. URSODIOL [Concomitant]
     Indication: PROPHYLAXIS AGAINST TRANSPLANT REJECTION
     Dosage: 300 MG, 1 CAPSULE, TID
     Route: 048
     Dates: start: 20120202
  5. CELLCEPT [Concomitant]
     Indication: PROPHYLAXIS AGAINST TRANSPLANT REJECTION
     Dosage: 500 MG, BID
     Route: 048
     Dates: start: 20120202, end: 20120711

REACTIONS (4)
  - DIZZINESS [None]
  - BALANCE DISORDER [None]
  - JAUNDICE [None]
  - BILIRUBIN CONJUGATED INCREASED [None]
